FAERS Safety Report 9422386 (Version 5)
Quarter: 2013Q3

REPORT INFORMATION
  Report Type: Report from Study
  Country: US (occurrence: US)
  Receive Date: 20130726
  Receipt Date: 20130923
  Transmission Date: 20140515
  Serious: Yes (Hospitalization)
  Sender: FDA-Public Use
  Company Number: US-AMGEN-USACT2013052225

PATIENT
  Age: 51 Year
  Sex: Female
  Weight: 70.5 kg

DRUGS (18)
  1. PEGFILGRASTIM [Suspect]
     Indication: BONE PAIN
     Dosage: 6 MG, UNK
     Route: 065
     Dates: start: 20130715
  2. DOCETAXEL [Concomitant]
     Indication: BREAST CANCER
     Dosage: 131 MG, UNK
     Dates: start: 20130712
  3. CYCLOPHOSPHAMIDE [Concomitant]
     Indication: BREAST CANCER
     Dosage: 1050 MG, UNK
     Dates: start: 20130712
  4. PEPCID [Concomitant]
     Dosage: 20 MG, UNK
     Route: 042
     Dates: start: 20130712, end: 20130712
  5. XANAX [Concomitant]
     Dosage: 1 MG, UNK
     Route: 048
     Dates: start: 20130531
  6. PHENERGAN [Concomitant]
     Dosage: 25 MG, UNK
     Route: 048
     Dates: start: 20130712
  7. ZOFRAN [Concomitant]
     Dosage: 8 MG, UNK
     Route: 048
     Dates: start: 20120712
  8. MULTIVITAMIN AND MINERAL SUPPLEMENT [Concomitant]
     Dosage: UNK
     Route: 048
     Dates: start: 20130614
  9. VITAMIN C [Concomitant]
     Dosage: UNK
     Route: 048
     Dates: start: 20130614
  10. CALCIUM PLUS VITAMIN D [Concomitant]
     Dosage: UNK UNK, BID
     Route: 048
     Dates: start: 20130614
  11. FERROUS SULFATE [Concomitant]
     Dosage: 325 MG, UNK
     Route: 048
     Dates: start: 20130530
  12. GABAPENTIN [Concomitant]
     Dosage: 900 MG, UNK
     Route: 048
     Dates: start: 20100620
  13. OXYCONTIN [Concomitant]
     Dosage: 40 MG, UNK
     Route: 048
     Dates: start: 20130614
  14. HYDROCODONE [Concomitant]
     Dosage: 10 MG, UNK
     Route: 048
     Dates: start: 20130604
  15. ACETAMINOPHEN [Concomitant]
     Dosage: 1000 MG, UNK
     Route: 048
     Dates: start: 20130604
  16. ALOXI [Concomitant]
     Dosage: 0.25 MG, UNK
     Route: 042
     Dates: start: 20130712, end: 20130712
  17. DEXAMETHASONE [Concomitant]
     Dosage: 10 MG, UNK
     Route: 042
     Dates: start: 20130712, end: 20130712
  18. DIPHENHYDRAMINE [Concomitant]
     Dosage: 25 MG, UNK
     Route: 042
     Dates: start: 20130712, end: 20130712

REACTIONS (2)
  - Febrile neutropenia [Recovered/Resolved]
  - Bone pain [Recovered/Resolved]
